FAERS Safety Report 17495906 (Version 1)
Quarter: 2020Q1

REPORT INFORMATION
  Report Type: Spontaneous
  Country: US (occurrence: US)
  Receive Date: 20200304
  Receipt Date: 20200304
  Transmission Date: 20200409
  Serious: Yes (Death)
  Sender: FDA-Public Use
  Company Number: None

PATIENT
  Age: 79 Year
  Sex: Male

DRUGS (1)
  1. METOPROLOL SUCCINATE 50MG [Suspect]
     Active Substance: METOPROLOL SUCCINATE

REACTIONS (1)
  - Death [None]
